FAERS Safety Report 9324128 (Version 1)
Quarter: 2013Q2

REPORT INFORMATION
  Report Type: Spontaneous
  Country: TR (occurrence: TR)
  Receive Date: 20130603
  Receipt Date: 20130603
  Transmission Date: 20140414
  Serious: Yes (Hospitalization, Disabling, Other)
  Sender: FDA-Public Use
  Company Number: TR-CUBIST PHARMACEUTICAL, INC.-2013CBST000276

PATIENT
  Sex: 0

DRUGS (8)
  1. CUBICIN [Suspect]
     Indication: PNEUMONIA
     Dosage: 350 MG, UNK
     Route: 042
     Dates: start: 20130314
  2. CUBICIN [Suspect]
     Indication: POSTOPERATIVE WOUND INFECTION
  3. CUBICIN [Suspect]
     Indication: OFF LABEL USE
  4. COLISTIN [Suspect]
     Indication: PNEUMONIA
     Dosage: 450 MG, UNK
     Route: 042
     Dates: start: 20130314, end: 20130327
  5. COLISTIN [Suspect]
     Indication: POSTOPERATIVE WOUND INFECTION
  6. IMIPENEM [Suspect]
     Indication: PNEUMONIA
     Dosage: 2000 MG, UNK
     Route: 042
     Dates: start: 20130314, end: 20130327
  7. IMIPENEM [Suspect]
     Indication: POSTOPERATIVE WOUND INFECTION
  8. ALL OTHER THERAPEUTIC PRODUCTS [Concomitant]
     Indication: CARDIAC DISORDER
     Dosage: UNK UNK, UNK
     Route: 065

REACTIONS (2)
  - Deafness bilateral [Not Recovered/Not Resolved]
  - Neuropathy peripheral [Unknown]
